FAERS Safety Report 4583700-2 (Version None)
Quarter: 2005Q1

REPORT INFORMATION
  Report Type: 
  Country: None (occurrence: None)
  Receive Date: 20050216
  Receipt Date: 20050204
  Transmission Date: 20050727
  Serious: Yes (Death)
  Sender: FDA-Public Use
  Company Number: JP-BRISTOL-MYERS SQUIBB COMPANY-12856308

PATIENT
  Age: 45 Year
  Sex: Male

DRUGS (2)
  1. ENDOXAN [Suspect]
     Indication: LIVER DISORDER
  2. TACROLIMUS [Suspect]
     Indication: LIVER DISORDER

REACTIONS (2)
  - CEREBRAL HAEMORRHAGE [None]
  - THROMBOTIC MICROANGIOPATHY [None]
